FAERS Safety Report 4336302-7 (Version None)
Quarter: 2004Q2

REPORT INFORMATION
  Report Type: 
  Country: None (occurrence: None)
  Receive Date: 20040409
  Receipt Date: 20040409
  Transmission Date: 20050107
  Serious: Yes (Other)
  Sender: FDA-Public Use
  Company Number: None

PATIENT
  Age: 69 Year
  Sex: Male
  Weight: 158.759 kg

DRUGS (6)
  1. BEXTRA [Suspect]
     Indication: ARTHRITIS
     Dosage: 1 TABLE ONCE DAILY
  2. SYNTHROID [Concomitant]
  3. ACCUPRIL [Concomitant]
  4. HYDRODIURIL [Concomitant]
  5. POTASSIUM CHLORIDE [Concomitant]
  6. FIORINAL PLAIN [Concomitant]

REACTIONS (2)
  - STEVENS-JOHNSON SYNDROME [None]
  - URTICARIA [None]
